FAERS Safety Report 16356276 (Version 2)
Quarter: 2019Q2

REPORT INFORMATION
  Report Type: Spontaneous
  Country: CA (occurrence: CA)
  Receive Date: 20190527
  Receipt Date: 20190529
  Transmission Date: 20190711
  Serious: Yes (Other)
  Sender: FDA-Public Use
  Company Number: CA-ABBVIE-19K-028-2793205-00

PATIENT
  Age: 38 Year
  Sex: Male

DRUGS (3)
  1. HUMIRA [Suspect]
     Active Substance: ADALIMUMAB
     Indication: COLITIS ULCERATIVE
     Route: 058
  2. AZATHIOPRINE. [Suspect]
     Active Substance: AZATHIOPRINE
     Indication: PRODUCT USED FOR UNKNOWN INDICATION
     Route: 065
  3. MESALAMINE. [Concomitant]
     Active Substance: MESALAMINE
     Indication: PRODUCT USED FOR UNKNOWN INDICATION
     Route: 048

REACTIONS (12)
  - Rash [Recovered/Resolved]
  - Defaecation urgency [Recovered/Resolved]
  - Amnesia [Recovered/Resolved]
  - Rectal polyp [Recovered/Resolved]
  - Anxiety [Recovered/Resolved]
  - Gastrointestinal fistula [Recovered/Resolved]
  - Colitis [Recovered/Resolved]
  - Gastrointestinal oedema [Recovered/Resolved]
  - Pruritus [Recovered/Resolved]
  - Gastrointestinal inflammation [Recovered/Resolved]
  - Gastrointestinal disorder [Recovered/Resolved]
  - Abscess intestinal [Recovered/Resolved]
